FAERS Safety Report 19193398 (Version 1)
Quarter: 2021Q2

REPORT INFORMATION
  Report Type: Spontaneous
  Country: US (occurrence: US)
  Receive Date: 20210429
  Receipt Date: 20210429
  Transmission Date: 20210717
  Serious: No
  Sender: FDA-Public Use
  Company Number: US-ASTRAZENECA-2021A344656

PATIENT
  Sex: Male

DRUGS (2)
  1. BYDUREON [Suspect]
     Active Substance: EXENATIDE
     Indication: BLOOD CHOLESTEROL
     Dosage: 2.0MG UNKNOWN
     Route: 058
  2. BYDUREON BCISE [Suspect]
     Active Substance: EXENATIDE
     Indication: BLOOD CHOLESTEROL
     Dosage: 2.0MG UNKNOWN
     Route: 058

REACTIONS (6)
  - Injection site mass [Unknown]
  - Device use issue [Unknown]
  - Drug delivery system issue [Unknown]
  - Weight decreased [Unknown]
  - Glycosylated haemoglobin [Unknown]
  - Wrong technique in device usage process [Unknown]
